FAERS Safety Report 20302463 (Version 3)
Quarter: 2022Q1

REPORT INFORMATION
  Report Type: Spontaneous
  Country: EG (occurrence: EG)
  Receive Date: 20220106
  Receipt Date: 20220125
  Transmission Date: 20220424
  Serious: Yes (Other)
  Sender: FDA-Public Use
  Company Number: EG-NOVOPROD-880288

PATIENT
  Sex: Female
  Weight: 99 kg

DRUGS (10)
  1. INSULIN HUMAN [Suspect]
     Active Substance: INSULIN HUMAN
     Indication: Diabetes mellitus
     Dosage: 50 IU, QD (30 IU/MORN. AND 20 IU /NIGHT)
     Route: 058
  2. NOVORAPID [Suspect]
     Active Substance: INSULIN ASPART
     Indication: Diabetes mellitus
     Dosage: 15 IU, TID (PER MEAL)
     Route: 065
  3. ARIMIDEX [Concomitant]
     Active Substance: ANASTROZOLE
     Indication: Breast cancer
     Dosage: 1 ORAL TAB./24 HRS SINCE 2019 AND ONGOING
     Route: 048
     Dates: start: 2019
  4. AMOSAR FORTE [Concomitant]
     Indication: Hypertension
     Dosage: 1 ORAL TAB./BREAKFAST
     Route: 048
     Dates: start: 2017
  5. CONVENTIN [Concomitant]
     Indication: Pain
     Dosage: 1 ORAL TAB./NIGHT AS A SINCE 2018
     Route: 048
     Dates: start: 2018
  6. B-COM [Concomitant]
     Indication: Neuropathy peripheral
     Dosage: 1 INTRAMUSCULAR AMP./3 DAYS ,  FROM 11-2018
     Route: 030
     Dates: start: 201811
  7. PRAZOLEN [OMEPRAZOLE SODIUM] [Concomitant]
     Indication: Prophylaxis
     Dosage: 2 TAB./DAY SINCE 2018
     Route: 065
     Dates: start: 2018
  8. MELGAR [Concomitant]
     Indication: Neuropathy peripheral
     Dosage: 1 TAB./DAY
     Route: 065
     Dates: start: 2018
  9. ACETAMINOPHEN [Concomitant]
     Active Substance: ACETAMINOPHEN
     Indication: Analgesic therapy
     Dosage: 1 TAB/MEAL
     Route: 065
     Dates: start: 2018
  10. CALDIN C [Concomitant]
     Indication: Mineral supplementation
     Dosage: 1 CAB./ DAY
     Route: 065
     Dates: start: 201811

REACTIONS (3)
  - Heart valve incompetence [Not Recovered/Not Resolved]
  - Hyperglycaemia [Unknown]
  - Drug ineffective [Unknown]

NARRATIVE: CASE EVENT DATE: 20211201
